FAERS Safety Report 9408403 (Version 1)
Quarter: 2013Q3

REPORT INFORMATION
  Report Type: Report from Study
  Country: US (occurrence: US)
  Receive Date: 20130718
  Receipt Date: 20130718
  Transmission Date: 20140515
  Serious: Yes (Hospitalization)
  Sender: FDA-Public Use
  Company Number: US-ABBOTT-13P-163-1117816-00

PATIENT
  Sex: Male
  Weight: 93.07 kg

DRUGS (9)
  1. HUMIRA [Suspect]
     Indication: COLITIS ULCERATIVE
     Dosage: LOADING DOSE
     Dates: start: 201302, end: 201302
  2. HUMIRA [Suspect]
     Dates: start: 2013, end: 2013
  3. HUMIRA [Suspect]
     Dates: start: 2013
  4. PREDNISONE [Concomitant]
     Indication: COLITIS ULCERATIVE
  5. SINGULAIR [Concomitant]
     Indication: HYPERSENSITIVITY
  6. LIBRAX [Concomitant]
     Indication: GASTROINTESTINAL DISORDER
  7. ZYPREXA [Concomitant]
     Indication: RELAXATION THERAPY
  8. ZYPREXA [Concomitant]
     Indication: INSOMNIA
  9. XANAX [Concomitant]
     Indication: AGITATION

REACTIONS (5)
  - Haematochezia [Unknown]
  - Abdominal pain [Not Recovered/Not Resolved]
  - Diarrhoea [Recovered/Resolved]
  - Fatigue [Not Recovered/Not Resolved]
  - Asthenia [Not Recovered/Not Resolved]
